FAERS Safety Report 9744216 (Version 1)
Quarter: 2013Q4

REPORT INFORMATION
  Report Type: Spontaneous
  Country: US (occurrence: US)
  Receive Date: 20131210
  Receipt Date: 20131210
  Transmission Date: 20140711
  Serious: No
  Sender: FDA-Public Use
  Company Number: US-BIOGENIDEC-2013BI100745

PATIENT
  Age: 56 Year
  Sex: Female

DRUGS (13)
  1. TECFIDERA [Suspect]
     Indication: MULTIPLE SCLEROSIS
     Route: 048
     Dates: start: 20130607
  2. PEPTO-BISMOL [Concomitant]
  3. REGLAN [Concomitant]
  4. LIPITOR [Concomitant]
  5. TRAMADOL HCL [Concomitant]
  6. CLONAZEPAM [Concomitant]
  7. PROMETHAZINE [Concomitant]
  8. FLEET GLYCERIN [Concomitant]
  9. LAMICTAL [Concomitant]
  10. PRILOSEC [Concomitant]
  11. SEROQUEL [Concomitant]
  12. ADDERALL [Concomitant]
  13. ASPIRIN [Concomitant]

REACTIONS (2)
  - Arthralgia [Unknown]
  - Muscle spasms [Unknown]
